FAERS Safety Report 10149842 (Version 1)
Quarter: 2014Q2

REPORT INFORMATION
  Report Type: Spontaneous
  Country: US (occurrence: US)
  Receive Date: 20140502
  Receipt Date: 20140502
  Transmission Date: 20141212
  Serious: No
  Sender: FDA-Public Use
  Company Number: US-009507513-1404USA013142

PATIENT
  Age: 49 Year
  Sex: Female
  Weight: 113.38 kg

DRUGS (1)
  1. DULERA [Suspect]
     Dosage: 100, 2 PUFFS BID
     Route: 055
     Dates: start: 20130926, end: 20131031

REACTIONS (2)
  - Tongue haemorrhage [Recovered/Resolved]
  - Glossitis [Recovered/Resolved]
